FAERS Safety Report 15097611 (Version 1)
Quarter: 2018Q3

REPORT INFORMATION
  Report Type: Spontaneous
  Country: IT (occurrence: IT)
  Receive Date: 20180702
  Receipt Date: 20180702
  Transmission Date: 20181010
  Serious: Yes (Hospitalization)
  Sender: FDA-Public Use
  Company Number: IT-TEVA-2018-IT-916585

PATIENT
  Age: 92 Year
  Sex: Female

DRUGS (10)
  1. VENLAFAXINE [Suspect]
     Active Substance: VENLAFAXINE HYDROCHLORIDE
     Route: 065
  2. LYRICA [Suspect]
     Active Substance: PREGABALIN
     Route: 065
  3. ACETYLSALICYLIC ACID [Concomitant]
     Active Substance: ASPIRIN
     Route: 048
  4. IRBESARTAN. [Concomitant]
     Active Substance: IRBESARTAN
     Route: 048
  5. TAPAZOLE [Concomitant]
     Active Substance: METHIMAZOLE
     Indication: HYPERTHYROIDISM
     Route: 048
  6. SIMVASTATIN. [Concomitant]
     Active Substance: SIMVASTATIN
     Route: 048
  7. LASIX [Concomitant]
     Active Substance: FUROSEMIDE
     Route: 048
  8. CLOPIDOGREL [Concomitant]
     Active Substance: CLOPIDOGREL BISULFATE
     Route: 048
  9. VENLAFAXINE [Suspect]
     Active Substance: VENLAFAXINE HYDROCHLORIDE
     Route: 048
  10. LYRICA [Suspect]
     Active Substance: PREGABALIN
     Route: 048

REACTIONS (4)
  - Presyncope [Recovering/Resolving]
  - Hypoglycaemia [Recovering/Resolving]
  - Abdominal pain upper [Recovering/Resolving]
  - Hypotension [Recovering/Resolving]

NARRATIVE: CASE EVENT DATE: 20170912
